FAERS Safety Report 6305238-4 (Version None)
Quarter: 2009Q3

REPORT INFORMATION
  Report Type: 
  Country: None (occurrence: None)
  Receive Date: 20090810
  Receipt Date: 20090810
  Transmission Date: 20100115
  Serious: No
  Sender: FDA-Public Use
  Company Number: None

PATIENT
  Sex: Male
  Weight: 81.6475 kg

DRUGS (2)
  1. DEPAKOTE ER [Suspect]
     Indication: OSTEOARTHRITIS
     Dosage: 500MG 0H 3 NIGHTLY
     Dates: start: 19960101
  2. DEPAKOTE ER [Suspect]
     Indication: SCHIZOPHRENIA
     Dosage: 500MG 0H 3 NIGHTLY
     Dates: start: 19960101

REACTIONS (4)
  - INSOMNIA [None]
  - IRRITABILITY [None]
  - MOOD ALTERED [None]
  - PRODUCT SUBSTITUTION ISSUE [None]
